FAERS Safety Report 5634466-6 (Version None)
Quarter: 2008Q1

REPORT INFORMATION
  Report Type: 
  Country: None (occurrence: None)
  Receive Date: 20080222
  Receipt Date: 20080214
  Transmission Date: 20080703
  Serious: Yes (Other)
  Sender: FDA-Public Use
  Company Number: US-ASTRAZENECA-2007UW02008

PATIENT
  Age: 46 Year
  Sex: Female
  Weight: 119.5 kg

DRUGS (5)
  1. SEROQUEL [Suspect]
     Indication: SCHIZOPHRENIA
     Route: 048
     Dates: start: 19970101
  2. GEODON [Concomitant]
     Dates: start: 20050101
  3. RISPERDAL [Concomitant]
     Dates: start: 19980101
  4. ZYPREXA [Concomitant]
     Dates: start: 19980101, end: 19990101
  5. ALBUTEROL [Concomitant]

REACTIONS (11)
  - BLOOD CHOLESTEROL INCREASED [None]
  - BRONCHITIS [None]
  - CHEST DISCOMFORT [None]
  - CHEST PAIN [None]
  - COUGH [None]
  - DYSPEPSIA [None]
  - FATIGUE [None]
  - HYSTERECTOMY [None]
  - OBESITY [None]
  - TYPE 2 DIABETES MELLITUS [None]
  - VISION BLURRED [None]
